FAERS Safety Report 6163555-5 (Version None)
Quarter: 2009Q2

REPORT INFORMATION
  Report Type: 
  Country: None (occurrence: None)
  Receive Date: 20090420
  Receipt Date: 20090407
  Transmission Date: 20091009
  Serious: Yes (Hospitalization, Other)
  Sender: FDA-Public Use
  Company Number: A-CH2009-24393

PATIENT
  Age: 21 Year
  Sex: Female

DRUGS (5)
  1. TRACLEER [Suspect]
     Indication: SKIN ULCER
     Dosage: 62.5 MG, BID, ORAL
     Route: 048
     Dates: start: 20090201
  2. ORAL CONTRACEPTIVES NOS (ORAL CONTRACEPTIVES NOS) [Concomitant]
  3. NIFEDIPINE [Concomitant]
  4. PREDNISONE TAB [Concomitant]
  5. AZATHIOPRINE [Concomitant]

REACTIONS (2)
  - AMENORRHOEA [None]
  - PNEUMONIA [None]
